FAERS Safety Report 24434603 (Version 1)
Quarter: 2024Q4

REPORT INFORMATION
  Report Type: Spontaneous
  Country: US (occurrence: US)
  Receive Date: 20241014
  Receipt Date: 20241014
  Transmission Date: 20250115
  Serious: No
  Sender: KYOWA
  Company Number: US-KYOWAKIRIN-2024KK023069

PATIENT

DRUGS (1)
  1. CRYSVITA [Suspect]
     Active Substance: BUROSUMAB-TWZA
     Indication: Hereditary hypophosphataemic rickets
     Dosage: UNK (FIRST DOSE)
     Route: 065

REACTIONS (1)
  - Blood 1,25-dihydroxycholecalciferol increased [Not Recovered/Not Resolved]

NARRATIVE: CASE EVENT DATE: 20240101
